FAERS Safety Report 22258021 (Version 3)
Quarter: 2023Q2

REPORT INFORMATION
  Report Type: Spontaneous
  Country: US (occurrence: US)
  Receive Date: 20230427
  Receipt Date: 20230601
  Transmission Date: 20230721
  Serious: No
  Sender: FDA-Public Use
  Company Number: US-AIMMUNE THERAPEUTICS, INC.-2023AIMT00369

PATIENT

DRUGS (6)
  1. PALFORZIA [Suspect]
     Active Substance: PEANUT
     Indication: Food allergy
     Dosage: IDE (0.5-3MG), ONCE
     Route: 048
     Dates: start: 20230314, end: 20230314
  2. PALFORZIA [Suspect]
     Active Substance: PEANUT
     Dosage: 12 MG, 1X/DAY
     Route: 048
     Dates: start: 20230406, end: 20230412
  3. PALFORZIA [Suspect]
     Active Substance: PEANUT
     Dosage: 12 MG, ONCE, LAST DOSE PRIOR TO EVENTS
     Route: 048
     Dates: start: 20230411, end: 20230411
  4. PALFORZIA [Suspect]
     Active Substance: PEANUT
     Dosage: 8 MG, 1X/DAY, DOSE DECREASED
     Route: 048
     Dates: start: 20230413, end: 20230416
  5. PALFORZIA [Suspect]
     Active Substance: PEANUT
     Dosage: 10 MG, ONCE
     Route: 048
     Dates: start: 20230417, end: 20230417
  6. PALFORZIA [Suspect]
     Active Substance: PEANUT
     Dosage: 12 MG, 1X/DAY
     Route: 048
     Dates: start: 20230418

REACTIONS (2)
  - Cough [Recovered/Resolved]
  - Wheezing [Recovered/Resolved]

NARRATIVE: CASE EVENT DATE: 20230412
